FAERS Safety Report 25596429 (Version 1)
Quarter: 2025Q3

REPORT INFORMATION
  Report Type: Spontaneous
  Country: US (occurrence: US)
  Receive Date: 20250723
  Receipt Date: 20250723
  Transmission Date: 20251021
  Serious: No
  Sender: LUNDBECK
  Company Number: US-LUNDBECK-DKLU4017256

PATIENT
  Age: 82 Year
  Sex: Female

DRUGS (2)
  1. NORTHERA [Suspect]
     Active Substance: DROXIDOPA
     Indication: Syncope
     Dosage: 200 MILLIGRAM
     Route: 048
     Dates: start: 202103
  2. NORTHERA [Suspect]
     Active Substance: DROXIDOPA
     Indication: Parkinsonism

REACTIONS (3)
  - Dizziness [Unknown]
  - Condition aggravated [Unknown]
  - Blood pressure decreased [Unknown]

NARRATIVE: CASE EVENT DATE: 20250601
